FAERS Safety Report 25442374 (Version 1)
Quarter: 2025Q2

REPORT INFORMATION
  Report Type: Report from Study
  Country: US (occurrence: US)
  Receive Date: 20250617
  Receipt Date: 20250617
  Transmission Date: 20250716
  Serious: Yes (Other)
  Sender: ABBVIE
  Company Number: US-ABBVIE-6324366

PATIENT
  Sex: Female

DRUGS (1)
  1. SKYRIZI [Suspect]
     Active Substance: RISANKIZUMAB-RZAA
     Indication: Colitis ulcerative
     Route: 058

REACTIONS (6)
  - Loss of consciousness [Unknown]
  - Head injury [Unknown]
  - Skin laceration [Unknown]
  - Headache [Unknown]
  - Panic reaction [Unknown]
  - Volume blood decreased [Unknown]
